FAERS Safety Report 12342013 (Version 2)
Quarter: 2016Q2

REPORT INFORMATION
  Report Type: Spontaneous
  Country: DE (occurrence: DE)
  Receive Date: 20160506
  Receipt Date: 20160509
  Transmission Date: 20160815
  Serious: Yes (Other)
  Sender: FDA-Public Use
  Company Number: ALCN2016DE002945

PATIENT
  Age: 85 Year
  Sex: Female

DRUGS (1)
  1. DUOTRAV POLYQUAD [Suspect]
     Active Substance: TIMOLOL MALEATE\TRAVOPROST
     Indication: GLAUCOMA
     Dosage: 1 GTT, UNK
     Route: 047
     Dates: end: 20160422

REACTIONS (3)
  - Eye inflammation [Unknown]
  - Eye pain [Unknown]
  - Cataract [Unknown]

NARRATIVE: CASE EVENT DATE: 201603
